FAERS Safety Report 5467206-4 (Version None)
Quarter: 2007Q3

REPORT INFORMATION
  Report Type: 
  Country: None (occurrence: None)
  Receive Date: 20070925
  Receipt Date: 20070917
  Transmission Date: 20080115
  Serious: Yes (Hospitalization)
  Sender: FDA-Public Use
  Company Number: DE-BRISTOL-MYERS SQUIBB COMPANY-13914734

PATIENT
  Age: 57 Year
  Sex: Male

DRUGS (4)
  1. CETUXIMAB [Suspect]
     Indication: LARYNGEAL CANCER
     Dates: start: 20070822, end: 20070822
  2. CISPLATIN [Suspect]
     Indication: LARYNGEAL CANCER
     Dates: start: 20070822
  3. DOCETAXEL [Suspect]
     Indication: LARYNGEAL CANCER
     Dates: start: 20070822
  4. FLUOROURACIL [Suspect]
     Indication: LARYNGEAL CANCER
     Dates: start: 20070826, end: 20070826

REACTIONS (1)
  - LYMPHOPENIA [None]
